FAERS Safety Report 21884092 (Version 1)
Quarter: 2023Q1

REPORT INFORMATION
  Report Type: Spontaneous
  Country: US (occurrence: None)
  Receive Date: 20230118
  Receipt Date: 20230118
  Transmission Date: 20230417
  Serious: Yes (Other)
  Sender: FDA-Public Use
  Company Number: None

PATIENT
  Age: 17 Year
  Sex: Female

DRUGS (1)
  1. AMMONIA INHALANTS [Suspect]
     Active Substance: AMMONIA
     Indication: Product substitution

REACTIONS (5)
  - Vomiting [None]
  - Diarrhoea [None]
  - Migraine [None]
  - Seizure [None]
  - Tongue haemorrhage [None]

NARRATIVE: CASE EVENT DATE: 20230115
